FAERS Safety Report 15565855 (Version 1)
Quarter: 2018Q4

REPORT INFORMATION
  Report Type: Spontaneous
  Country: US (occurrence: US)
  Receive Date: 20181030
  Receipt Date: 20181030
  Transmission Date: 20190205
  Serious: Yes (Death)
  Sender: FDA-Public Use
  Company Number: None

PATIENT
  Age: 52 Year
  Sex: Male

DRUGS (4)
  1. VIBRAMYCIN [Concomitant]
     Active Substance: DOXYCYCLINE
  2. XARELTO [Concomitant]
     Active Substance: RIVAROXABAN
  3. LEVOTHYROXINE. [Concomitant]
     Active Substance: LEVOTHYROXINE
  4. ZARXIO [Suspect]
     Active Substance: FILGRASTIM-SNDZ
     Indication: AGRANULOCYTOSIS
     Dosage: ?          OTHER FREQUENCY:DAILY AS DIRECTED;?
     Route: 058
     Dates: start: 20180815

REACTIONS (1)
  - Death [None]

NARRATIVE: CASE EVENT DATE: 20181028
